FAERS Safety Report 6026442-9 (Version None)
Quarter: 2009Q1

REPORT INFORMATION
  Report Type: 
  Country: None (occurrence: None)
  Receive Date: 20090102
  Receipt Date: 20081218
  Transmission Date: 20090719
  Serious: Yes (Other)
  Sender: FDA-Public Use
  Company Number: US-PFIZER INC-2008160399

PATIENT
  Sex: Male
  Weight: 58.957 kg

DRUGS (6)
  1. GEODON [Suspect]
     Indication: ANGER
     Dosage: UNK
  2. GEODON [Suspect]
     Indication: DISSOCIATION
  3. GEODON [Suspect]
     Indication: IMPULSIVE BEHAVIOUR
  4. ALL OTHER THERAPEUTIC PRODUCTS [Suspect]
     Indication: DISSOCIATION
  5. ALL OTHER THERAPEUTIC PRODUCTS [Suspect]
     Indication: IMPULSIVE BEHAVIOUR
  6. ALL OTHER THERAPEUTIC PRODUCTS [Suspect]
     Indication: ANGER

REACTIONS (3)
  - ANGER [None]
  - DRUG INEFFECTIVE [None]
  - MYDRIASIS [None]
